FAERS Safety Report 8978737 (Version 1)
Quarter: 2012Q4

REPORT INFORMATION
  Report Type: 
  Country: US (occurrence: US)
  Receive Date: 20121221
  Receipt Date: 20121221
  Transmission Date: 20130627
  Serious: Yes (Hospitalization)
  Sender: FDA-Public Use
  Company Number: US-AMGEN-USASP2012080701

PATIENT
  Age: 74 Year
  Sex: Female

DRUGS (17)
  1. PROLIA [Suspect]
     Indication: OSTEOPOROSIS
     Dosage: UNK
     Dates: start: 201204
  2. ALBUTEROL                          /00139501/ [Concomitant]
     Dosage: UNK UNK, q4h
     Route: 045
  3. SYMBICORT [Concomitant]
     Dosage: UNK UNK, bid
  4. SPIRIVA [Concomitant]
     Dosage: UNK UNK, bid
  5. FLUTICASONE [Concomitant]
     Route: 045
  6. SINGULAIR [Concomitant]
     Dosage: 10 mg, qd
  7. LISINOPRIL [Concomitant]
     Dosage: 2.5 mg, qd
  8. AMLODIPINE [Concomitant]
     Dosage: 10 mg, qd
  9. MUCINEX [Concomitant]
     Dosage: UNK UNK, prn
  10. OSCAL D                            /00944201/ [Concomitant]
     Dosage: 500 mg, UNK
  11. HYDROCODONE [Concomitant]
     Dosage: UNK UNK, prn
  12. AZELASTINE [Concomitant]
     Route: 045
  13. METHIMAZOLE [Concomitant]
  14. DESVENLAFAXINE [Concomitant]
     Dosage: 75 mg, qd
  15. PREDNISONE [Concomitant]
     Dosage: 10 mg, qd
  16. LIPITOR [Concomitant]
     Dosage: 40 mg, qd
  17. OXYGEN [Concomitant]

REACTIONS (7)
  - Chronic obstructive pulmonary disease [Recovered/Resolved]
  - Lung infection [Recovered/Resolved]
  - Blood calcium increased [Unknown]
  - Pain [Unknown]
  - Rash erythematous [Recovered/Resolved]
  - Tremor [Unknown]
  - Oedema peripheral [Recovered/Resolved]
